FAERS Safety Report 4905497-6 (Version None)
Quarter: 2006Q1

REPORT INFORMATION
  Report Type: 
  Country: None (occurrence: None)
  Receive Date: 20060208
  Receipt Date: 20060116
  Transmission Date: 20060701
  Serious: Yes (Other)
  Sender: FDA-Public Use
  Company Number: GB-BRISTOL-MYERS SQUIBB COMPANY-13250675

PATIENT
  Age: 58 Year
  Sex: Female

DRUGS (1)
  1. HYDREA [Suspect]
     Indication: PSORIASIS
     Route: 048
     Dates: start: 20041212

REACTIONS (3)
  - HYPOTHYROIDISM [None]
  - MACROCYTOSIS [None]
  - MEAN CELL VOLUME INCREASED [None]
